FAERS Safety Report 10393486 (Version 1)
Quarter: 2014Q3

REPORT INFORMATION
  Report Type: Spontaneous
  Country: NZ (occurrence: NZ)
  Receive Date: 20140819
  Receipt Date: 20140819
  Transmission Date: 20150326
  Serious: Yes (Other)
  Sender: FDA-Public Use
  Company Number: NZ-GLAXOSMITHKLINE-B1024456A

PATIENT
  Age: 65 Year
  Sex: Female

DRUGS (3)
  1. NON STEROIDAL ANTI-INFLAMMATORY DRUG [Concomitant]
     Indication: OSTEOARTHRITIS
     Route: 065
  2. PROTON PUMP INHIBITOR [Concomitant]
     Active Substance: UNSPECIFIED INGREDIENT
     Indication: DYSPEPSIA
     Route: 065
  3. ACITRETIN [Suspect]
     Active Substance: ACITRETIN
     Indication: SKIN PAPILLOMA
     Route: 065

REACTIONS (3)
  - Vision blurred [Unknown]
  - Cystoid macular oedema [Recovered/Resolved]
  - Maculopathy [Unknown]
